FAERS Safety Report 5154498-4 (Version None)
Quarter: 2006Q4

REPORT INFORMATION
  Report Type: 
  Country: None (occurrence: None)
  Receive Date: 20061114
  Receipt Date: 20061030
  Transmission Date: 20070319
  Serious: Yes (Other)
  Sender: FDA-Public Use
  Company Number: GBWYE324323JAN06

PATIENT
  Age: 27 Year
  Sex: Female

DRUGS (17)
  1. EFFEXOR [Suspect]
     Indication: DEPRESSION
     Dosage: 37 MG 2X PER 1 DAY ORAL
     Route: 048
     Dates: start: 20040719, end: 20060123
  2. CO-DYDRAMOL (DIHYDROCODEINE BITARTRATE/PARACETAMOL) [Concomitant]
  3. DICLOFENAC SODIUM [Concomitant]
  4. LACTULOSE [Concomitant]
  5. GENTAMICIN [Concomitant]
  6. LOESTRIN 1.5/30 [Concomitant]
  7. LEVONELLE 2 (LEVONOGRESTREL) [Concomitant]
  8. LOESTRIN 1.5/30 [Concomitant]
  9. NICORETTE [Concomitant]
  10. AMOXICILLIN [Concomitant]
  11. NICORETTE INHALATOR (NICOTINE) [Concomitant]
  12. CLOTRIMAZOLE 9CLOTRIMAZOLE) [Concomitant]
  13. GAVISCON [Concomitant]
  14. CO-DYDRAMOL (DIHYDROCODEINE BITARTRATE/PARACETAMOL) [Concomitant]
  15. FLOXACILLIN SODIUM [Concomitant]
  16. GLYCEROL (GLYCEROL) [Concomitant]
  17. CO-AMOXICLAV (AMOXICILLIN TRIHYDRATE/CLAVULANATE POTASSIUM) [Concomitant]

REACTIONS (23)
  - ARTHRALGIA [None]
  - BLOOD ALKALINE PHOSPHATASE INCREASED [None]
  - CAESAREAN SECTION [None]
  - CONSTIPATION [None]
  - DRUG EXPOSURE DURING PREGNANCY [None]
  - DRUG EXPOSURE VIA BREAST MILK [None]
  - FAECALOMA [None]
  - GALACTOSTASIS [None]
  - HEADACHE [None]
  - HYPOTENSION [None]
  - INFREQUENT BOWEL MOVEMENTS [None]
  - LABOUR COMPLICATION [None]
  - LACTATION DISORDER [None]
  - NIPPLE PAIN [None]
  - OEDEMA PERIPHERAL [None]
  - OTITIS EXTERNA [None]
  - PAIN [None]
  - PROLONGED LABOUR [None]
  - RASH [None]
  - SCIATICA [None]
  - SKIN INFECTION [None]
  - TINEA PEDIS [None]
  - UPPER RESPIRATORY TRACT INFECTION [None]
